FAERS Safety Report 5331424-6 (Version None)
Quarter: 2007Q2

REPORT INFORMATION
  Report Type: 
  Country: None (occurrence: None)
  Receive Date: 20070516
  Receipt Date: 20070507
  Transmission Date: 20071010
  Serious: Yes (Death)
  Sender: FDA-Public Use
  Company Number: 2007AP000495

PATIENT
  Age: 61 Year
  Sex: Male

DRUGS (9)
  1. CYCLOSPORINE [Suspect]
     Indication: ALLOGENIC BONE MARROW TRANSPLANTATION THERAPY
     Dosage: 3 MG/KG; QD
  2. CYCLOSPORINE [Suspect]
     Indication: PROPHYLAXIS AGAINST GRAFT VERSUS HOST DISEASE
     Dosage: 3 MG/KG; QD
  3. FLUDARABINE PHOSPHATE [Suspect]
     Dosage: 125 MG/M2
  4. CYCLOPHOSPHAMIDE [Concomitant]
  5. MYCOPHENOLATE MOFETIL [Concomitant]
  6. GLUCOCORTICOSTEROIDS [Concomitant]
  7. PSORALENS FOR TOPICAL USE [Concomitant]
  8. PREDNISONE TAB [Concomitant]
  9. METHOTREXATE [Concomitant]

REACTIONS (6)
  - ACUTE GRAFT VERSUS HOST DISEASE IN SKIN [None]
  - CEREBROVASCULAR ACCIDENT [None]
  - CHRONIC GRAFT VERSUS HOST DISEASE [None]
  - GASTROINTESTINAL DISORDER [None]
  - OBLITERATIVE BRONCHIOLITIS [None]
  - SQUAMOUS CELL CARCINOMA OF SKIN [None]
